FAERS Safety Report 9494508 (Version 1)
Quarter: 2013Q3

REPORT INFORMATION
  Report Type: Spontaneous
  Country: US (occurrence: None)
  Receive Date: 20130830
  Receipt Date: 20130830
  Transmission Date: 20140515
  Serious: No
  Sender: FDA-Public Use
  Company Number: None

PATIENT
  Age: 73 Year
  Sex: Female
  Weight: 49.9 kg

DRUGS (16)
  1. LEVAQUIN [Suspect]
     Indication: INFLUENZA
     Dosage: STRENGTH: 500 MG. ?QUANTITY:  1 PILL?FREQUENCY:  ONCE DAILY?HOW:  BY MOUTH?
     Route: 048
     Dates: start: 20130514, end: 20130524
  2. LEVAQUIN [Suspect]
     Indication: SINUSITIS
     Dosage: STRENGTH: 500 MG. ?QUANTITY:  1 PILL?FREQUENCY:  ONCE DAILY?HOW:  BY MOUTH?
     Route: 048
     Dates: start: 20130514, end: 20130524
  3. VIT B-12 [Concomitant]
  4. ALLERGY SHOTS [Concomitant]
  5. MULTI VIT [Concomitant]
  6. VIT C [Concomitant]
  7. B-COMPLEX [Concomitant]
  8. FISH OIL [Concomitant]
  9. MELATONI [Concomitant]
  10. D.E.A. [Concomitant]
  11. ANTIOXIDAMS [Concomitant]
  12. ACETYL-L-CORNITINE [Concomitant]
  13. L-CORNITINE [Concomitant]
  14. FOLIC ACID [Concomitant]
  15. DHEA [Concomitant]
  16. 5-HTP [Concomitant]

REACTIONS (1)
  - Plantar fasciitis [None]
